FAERS Safety Report 9661259 (Version 1)
Quarter: 2013Q4

REPORT INFORMATION
  Report Type: Spontaneous
  Country: US (occurrence: US)
  Receive Date: 20131031
  Receipt Date: 20131031
  Transmission Date: 20140711
  Serious: Yes (Other)
  Sender: FDA-Public Use
  Company Number: US-FRI-1000050468

PATIENT
  Sex: Female
  Weight: 113 kg

DRUGS (6)
  1. LEXAPRO [Suspect]
     Indication: DEPRESSION
     Dosage: 10 MG
     Route: 048
     Dates: start: 2005, end: 201309
  2. LEXAPRO [Suspect]
     Indication: ARTHRITIS
  3. ADVIL [Suspect]
     Indication: ARTHRITIS
     Dosage: 2-3 TIMES DAILY PRN (UP TO 6 TIMES DAILY)
     Dates: start: 2003
  4. ADVIL [Suspect]
     Indication: PAIN
  5. SYNTHROID [Concomitant]
     Indication: HYPOTHYROIDISM
     Dosage: 0.25 MG
  6. BENICAR [Concomitant]
     Indication: HYPERTENSION
     Dosage: 40 MG

REACTIONS (3)
  - Large intestinal haemorrhage [Recovered/Resolved]
  - Anaemia [Unknown]
  - Blood pressure increased [Unknown]
